FAERS Safety Report 7313975-8 (Version None)
Quarter: 2011Q1

REPORT INFORMATION
  Report Type: 
  Country: None (occurrence: None)
  Receive Date: 20110225
  Receipt Date: 20110214
  Transmission Date: 20110831
  Serious: Yes (Other)
  Sender: FDA-Public Use
  Company Number: PHHY2011AR11826

PATIENT
  Sex: Female

DRUGS (2)
  1. ACETAMINOPHEN [Concomitant]
  2. ACLASTA [Suspect]
     Indication: OSTEOPOROSIS
     Dosage: 5 MG, UNK
     Dates: start: 20110201

REACTIONS (6)
  - PYREXIA [None]
  - FEELING ABNORMAL [None]
  - BALANCE DISORDER [None]
  - CONVULSION [None]
  - NAUSEA [None]
  - DIZZINESS [None]
